FAERS Safety Report 5849579-3 (Version None)
Quarter: 2008Q3

REPORT INFORMATION
  Report Type: 
  Country: None (occurrence: None)
  Receive Date: 20080819
  Receipt Date: 20080811
  Transmission Date: 20090109
  Serious: Yes (Life-Threatening)
  Sender: FDA-Public Use
  Company Number: US-TYCO HEALTHCARE/MALLINCKRODT-T200801280

PATIENT

DRUGS (2)
  1. OXYCODONE HCL [Suspect]
     Indication: OROPHARYNGEAL PAIN
     Dosage: 100 MG, SINGLE
     Dates: start: 20080401, end: 20080401
  2. OXYCODONE HCL [Suspect]
     Indication: SLEEP DISORDER

REACTIONS (5)
  - ACCIDENTAL OVERDOSE [None]
  - COLLAPSE OF LUNG [None]
  - COMA [None]
  - MEDICATION ERROR [None]
  - ORGAN FAILURE [None]
